FAERS Safety Report 4925323-9 (Version None)
Quarter: 2006Q1

REPORT INFORMATION
  Report Type: 
  Country: None (occurrence: None)
  Receive Date: 20060228
  Receipt Date: 20060220
  Transmission Date: 20060701
  Serious: Yes (Death, Hospitalization)
  Sender: FDA-Public Use
  Company Number: CA-BOEHRINGER INGELHEIM PHARMACEUTICALS, INC.-2006-CN-00106CN

PATIENT
  Age: 50 Year
  Sex: Male

DRUGS (1)
  1. VIRAMUNE [Suspect]
     Dates: start: 20030101

REACTIONS (1)
  - HEPATIC FAILURE [None]
